FAERS Safety Report 8499656 (Version 4)
Quarter: 2012Q4

REPORT INFORMATION
  Report Type: 
  Country: US (occurrence: US)
  Receive Date: 20120409
  Receipt Date: 20120828
  Transmission Date: 20130627
  Serious: Yes (Hospitalization)
  Sender: FDA-Public Use
  Company Number: US-BAYER-2012-031662

PATIENT
  Age: 27 Year
  Sex: Female
  Weight: 63.49 kg

DRUGS (20)
  1. YAZ [Suspect]
     Indication: ACNE
     Dosage: UNK
     Dates: start: 2003, end: 2010
  2. YASMIN [Suspect]
     Indication: ACNE
     Dosage: UNK
     Dates: start: 2003, end: 2010
  3. METOPROLOL [Concomitant]
     Indication: TACHYCARDIA
     Dosage: UNK
     Dates: start: 1995
  4. METOPROLOL [Concomitant]
     Indication: TACHYCARDIA
     Dosage: 100 mg tabs
     Route: 048
     Dates: start: 20100829, end: 20101013
  5. LYRICA [Concomitant]
     Indication: FIBROMYALGIA
     Dosage: UNK
     Dates: start: 2004
  6. LYRICA [Concomitant]
     Indication: FIBROMYALGIA
     Dosage: 75 mg caps
     Route: 048
     Dates: start: 20100916
  7. TRAMADOL [Concomitant]
     Indication: PAIN
     Dosage: UNK
     Dates: start: 2004
  8. MOTRIN [Concomitant]
     Indication: INFLAMMATION
     Dosage: UNK
     Dates: start: 2009
  9. TRIAMTERENE [Concomitant]
     Indication: VASCULITIS
     Dosage: UNK
     Dates: start: 2009
  10. TRIAMTERENE [Concomitant]
     Indication: OEDEMA
  11. HYDROCODONE W/ACETAMINOPHEN [Concomitant]
     Dosage: 5-325 tabs
     Route: 048
     Dates: start: 20100831, end: 20101013
  12. LEUCOVORIN CALCIUM [Concomitant]
     Dosage: 5 mg tabs
     Route: 048
     Dates: start: 20100829
  13. METHOTREXATE [Concomitant]
     Dosage: 2.5 mg tabs
     Route: 048
     Dates: start: 20100908
  14. ALPRAZOLAM [Concomitant]
     Dosage: 1 mg tabs
     Route: 048
     Dates: start: 20100906
  15. IBUPROFEN [Concomitant]
     Dosage: 600 mg caps
     Route: 048
     Dates: start: 20100921
  16. TRAMADOL HYDROCHLORIDE [Concomitant]
     Dosage: 50 mg tabs
     Route: 048
     Dates: start: 20100916, end: 20101016
  17. TRIAMTEREN HCT [Concomitant]
     Dosage: 37.5-25 mg caps
     Route: 048
     Dates: start: 20100915, end: 20101013
  18. ATROPINE [Concomitant]
     Route: 030
  19. PREDNISONE [Concomitant]
     Dosage: 10 mg,[three] tablets daily [times] 10 days
     Dates: start: 20100915
  20. VITAMIN D [Concomitant]
     Dosage: 1000 u, QID
     Dates: start: 20101018

REACTIONS (4)
  - Gallbladder disorder [None]
  - Cholecystitis acute [None]
  - Injury [None]
  - Pain [None]
